FAERS Safety Report 7776712-9 (Version None)
Quarter: 2011Q3

REPORT INFORMATION
  Report Type: 
  Country: None (occurrence: None)
  Receive Date: 20110922
  Receipt Date: 20110922
  Transmission Date: 20111222
  Serious: Yes (Life-Threatening, Hospitalization, Other)
  Sender: FDA-Public Use
  Company Number: None

PATIENT
  Age: 75 Year
  Sex: Male
  Weight: 68.0396 kg

DRUGS (1)
  1. LIPITOR [Suspect]
     Indication: BLOOD CHOLESTEROL INCREASED
     Dosage: ONE DAILY
     Dates: start: 20031103, end: 20110614

REACTIONS (4)
  - DIALYSIS [None]
  - MUSCULAR WEAKNESS [None]
  - DECREASED APPETITE [None]
  - RHABDOMYOLYSIS [None]
